FAERS Safety Report 18468436 (Version 1)
Quarter: 2020Q4

REPORT INFORMATION
  Report Type: Spontaneous
  Country: IT (occurrence: IT)
  Receive Date: 20201105
  Receipt Date: 20201105
  Transmission Date: 20210114
  Serious: Yes (Other)
  Sender: FDA-Public Use
  Company Number: IT-PFIZER INC-2020428190

PATIENT
  Age: 67 Year
  Sex: Male

DRUGS (1)
  1. XALKORI [Suspect]
     Active Substance: CRIZOTINIB
     Indication: LUNG ADENOCARCINOMA STAGE IV
     Dosage: 500 MG, 1X/DAY
     Route: 048
     Dates: start: 20200505, end: 20201007

REACTIONS (3)
  - Ocular hyperaemia [Unknown]
  - Asthenia [Unknown]
  - Eye oedema [Unknown]

NARRATIVE: CASE EVENT DATE: 20201007
